FAERS Safety Report 22322739 (Version 1)
Quarter: 2023Q2

REPORT INFORMATION
  Report Type: Report from Study
  Country: US (occurrence: US)
  Receive Date: 20230516
  Receipt Date: 20230516
  Transmission Date: 20230722
  Serious: Yes (Other)
  Sender: FDA-Public Use
  Company Number: US-UCBSA-2023006216

PATIENT
  Sex: Female

DRUGS (1)
  1. CERTOLIZUMAB PEGOL [Suspect]
     Active Substance: CERTOLIZUMAB PEGOL
     Indication: Rheumatoid arthritis
     Dosage: 400 MILLIGRAM, MONTHLY (QM), 2 INJECTIONS EV 4 WEEKS
     Route: 058
     Dates: start: 20221027

REACTIONS (9)
  - Rheumatoid arthritis [Not Recovered/Not Resolved]
  - Eczema [Recovering/Resolving]
  - Arthralgia [Recovering/Resolving]
  - Osteoporosis [Not Recovered/Not Resolved]
  - COVID-19 [Recovered/Resolved]
  - Rash [Not Recovered/Not Resolved]
  - Contusion [Not Recovered/Not Resolved]
  - Keratosis pilaris [Unknown]
  - Eczema [Unknown]

NARRATIVE: CASE EVENT DATE: 20220101
